FAERS Safety Report 5228387-0 (Version None)
Quarter: 2007Q1

REPORT INFORMATION
  Report Type: 
  Country: None (occurrence: None)
  Receive Date: 20070205
  Receipt Date: 20070123
  Transmission Date: 20070707
  Serious: Yes (Other)
  Sender: FDA-Public Use
  Company Number: PHBS2006CH13759

PATIENT
  Sex: Male

DRUGS (4)
  1. AREDIA [Suspect]
     Indication: MULTIPLE MYELOMA
     Route: 042
  2. ZOMETA [Suspect]
     Indication: MULTIPLE MYELOMA
     Route: 042
  3. CHEMOTHERAPEUTICS,OTHER [Concomitant]
     Route: 065
  4. CORTICOSTEROIDS [Concomitant]
     Route: 065

REACTIONS (2)
  - DENTAL TREATMENT [None]
  - OSTEONECROSIS [None]
